FAERS Safety Report 17735222 (Version 1)
Quarter: 2020Q2

REPORT INFORMATION
  Report Type: Other
  Country: None (occurrence: CN)
  Receive Date: 20200501
  Receipt Date: 20200501
  Transmission Date: 20200714
  Serious: Yes (Life-Threatening)
  Sender: FDA-Public Use
  Company Number: CN-JIANGSU HENGRUI MEDICINE CO., LTD.-2083415

PATIENT
  Age: 8 Day
  Sex: Female
  Weight: 1.23 kg

DRUGS (1)
  1. DEXMEDETOMIDINE HYDROCHLORIDE INJECTION, 200 MCG/2 ML (100 MCG/ML) SIN [Suspect]
     Active Substance: DEXMEDETOMIDINE HYDROCHLORIDE
     Indication: SEDATION
     Route: 045
     Dates: start: 20200420, end: 20200420

REACTIONS (4)
  - Bradycardia neonatal [Recovering/Resolving]
  - Hypotonia neonatal [Recovering/Resolving]
  - Incorrect route of product administration [Recovering/Resolving]
  - Hypoxia [Recovering/Resolving]

NARRATIVE: CASE EVENT DATE: 20200420
